FAERS Safety Report 22001054 (Version 4)
Quarter: 2023Q2

REPORT INFORMATION
  Report Type: Spontaneous
  Country: US (occurrence: US)
  Receive Date: 20230216
  Receipt Date: 20230613
  Transmission Date: 20230721
  Serious: Yes (Other)
  Sender: FDA-Public Use
  Company Number: US-BAYER-2023P010703

PATIENT
  Age: 27 Year
  Sex: Male

DRUGS (4)
  1. JIVI [Suspect]
     Active Substance: DAMOCTOCOG ALFA PEGOL
     Dosage: 5000 U (EVERY 5 DAYS AND PRN)
     Route: 042
  2. JIVI [Suspect]
     Active Substance: DAMOCTOCOG ALFA PEGOL
     Dosage: 2 DF, ONCE (TO TREAT THE BLEED)
     Route: 042
     Dates: start: 20230208, end: 20230208
  3. JIVI [Suspect]
     Active Substance: DAMOCTOCOG ALFA PEGOL
     Dosage: 1 DF, ONCE, FOR THE RIGHT ELBOW BLEED TREATMENT
  4. JIVI [Suspect]
     Active Substance: DAMOCTOCOG ALFA PEGOL
     Dosage: 2 DF, FOR LEFT ANKLE BLEED
     Route: 042
     Dates: start: 202305, end: 202305

REACTIONS (5)
  - Haemarthrosis [None]
  - Haemarthrosis [Recovered/Resolved]
  - Haemarthrosis [Recovered/Resolved]
  - Joint injury [None]
  - Joint injury [None]

NARRATIVE: CASE EVENT DATE: 20230208
